FAERS Safety Report 12651948 (Version 1)
Quarter: 2016Q3

REPORT INFORMATION
  Report Type: Spontaneous
  Country: HR (occurrence: HR)
  Receive Date: 20160815
  Receipt Date: 20160815
  Transmission Date: 20161109
  Serious: Yes (Death, Other)
  Sender: FDA-Public Use
  Company Number: HR-TEVA-685044ISR

PATIENT
  Age: 2 Year
  Sex: Female

DRUGS (1)
  1. FENTANYL. [Suspect]
     Active Substance: FENTANYL

REACTIONS (7)
  - Brain oedema [Unknown]
  - Accidental exposure to product [Fatal]
  - Toxicity to various agents [Fatal]
  - Drug administration error [Fatal]
  - Pulmonary oedema [Unknown]
  - Hepatic congestion [Unknown]
  - Regurgitation [Unknown]
